FAERS Safety Report 9456728 (Version 1)
Quarter: 2013Q3

REPORT INFORMATION
  Report Type: Spontaneous
  Country: GB (occurrence: GB)
  Receive Date: 20130813
  Receipt Date: 20130813
  Transmission Date: 20140515
  Serious: Yes (Life-Threatening, Hospitalization, Other)
  Sender: FDA-Public Use
  Company Number: GB-WATSON-2013-13719

PATIENT
  Age: 43 Year
  Sex: Female

DRUGS (6)
  1. FLUCLOXACILLIN [Suspect]
     Indication: CELLULITIS
     Dosage: UNK
     Route: 048
  2. PROPRANOLOL [Suspect]
     Indication: MIGRAINE
     Dosage: 80 MG, DAILY
     Route: 065
  3. EPINEPHRINE [Suspect]
     Indication: HYPOTENSION
     Dosage: 0.5 ML 1:1000 SOLUTION, 2 DOSES
     Route: 030
  4. EPINEPHRINE [Suspect]
     Indication: ANAPHYLACTIC REACTION
  5. LANSOPRAZOLE [Concomitant]
     Indication: PRODUCT USED FOR UNKNOWN INDICATION
     Dosage: UNK
     Route: 065
  6. FEXOFENADINE [Concomitant]
     Indication: PRODUCT USED FOR UNKNOWN INDICATION
     Dosage: UNK
     Route: 065

REACTIONS (2)
  - Anaphylactic reaction [Recovered/Resolved]
  - Myocardial infarction [Recovered/Resolved]
